FAERS Safety Report 8206966-6 (Version None)
Quarter: 2012Q1

REPORT INFORMATION
  Report Type: 
  Country: None (occurrence: None)
  Receive Date: 20120312
  Receipt Date: 20120213
  Transmission Date: 20120608
  Serious: Yes (Death, Hospitalization)
  Sender: FDA-Public Use
  Company Number: ESP-CLT-2012001

PATIENT
  Age: 10 Year
  Sex: Male

DRUGS (3)
  1. CYSTADANE [Suspect]
     Dosage: 6 000 MG EVERY DAY, ORAL
     Route: 048
     Dates: start: 20070822, end: 20070831
  2. VITAMIN B6 [Concomitant]
  3. FOLIC ACID [Concomitant]

REACTIONS (7)
  - TACHYCARDIA [None]
  - DEPRESSED LEVEL OF CONSCIOUSNESS [None]
  - SEPTIC SHOCK [None]
  - CEREBRAL THROMBOSIS [None]
  - BRAIN OEDEMA [None]
  - HYPERTONIA [None]
  - INTRACRANIAL PRESSURE INCREASED [None]
